FAERS Safety Report 9366715 (Version 1)
Quarter: 2013Q2

REPORT INFORMATION
  Report Type: Spontaneous
  Country: BR (occurrence: None)
  Receive Date: 20130620
  Receipt Date: 20130620
  Transmission Date: 20140414
  Serious: Yes (Hospitalization, Other)
  Sender: FDA-Public Use
  Company Number: DSJ-2013-13775

PATIENT
  Sex: 0
  Weight: 60 kg

DRUGS (4)
  1. BENICAR [Suspect]
     Indication: HYPERTENSION
     Route: 048
  2. BROMAZEPAM(BROMAZEPAM)(BROMAZEPAM) [Concomitant]
  3. ACETYLSALICYLIC ACID(ACETYLSALICYLIC ACID)(ACETYLSALICYLIC ACID) [Concomitant]
  4. OTHER MEDICINES[INGREDIENT UNKNOWN] [Concomitant]

REACTIONS (6)
  - Drug ineffective [None]
  - Cerebrovascular accident [None]
  - Infarction [None]
  - Headache [None]
  - Malaise [None]
  - Surgery [None]
